FAERS Safety Report 4610940-6 (Version None)
Quarter: 2005Q1

REPORT INFORMATION
  Report Type: 
  Country: None (occurrence: None)
  Receive Date: 20050315
  Receipt Date: 20050315
  Transmission Date: 20050727
  Serious: Yes (Hospitalization)
  Sender: FDA-Public Use
  Company Number: None

PATIENT
  Age: 62 Year
  Sex: Male
  Weight: 98.8842 kg

DRUGS (7)
  1. OLANZAPINE [Suspect]
     Indication: SCHIZOAFFECTIVE DISORDER
     Dosage: 15MG  HS ORAL
     Route: 048
     Dates: start: 20041221, end: 20050103
  2. OLANZAPINE [Suspect]
     Indication: SCHIZOPHRENIA
     Dosage: 15MG  HS ORAL
     Route: 048
     Dates: start: 20041221, end: 20050103
  3. TRAZODONE HCL [Concomitant]
  4. TEMAZEPAM [Concomitant]
  5. GABAPENTIN [Concomitant]
  6. LITHIUM CARBONATE CAP [Concomitant]
  7. BENZTROPINE [Concomitant]

REACTIONS (2)
  - COORDINATION ABNORMAL [None]
  - DYSARTHRIA [None]
